FAERS Safety Report 16209442 (Version 1)
Quarter: 2019Q2

REPORT INFORMATION
  Report Type: Spontaneous
  Country: US (occurrence: US)
  Receive Date: 20190417
  Receipt Date: 20190417
  Transmission Date: 20190711
  Serious: Yes (Hospitalization)
  Sender: FDA-Public Use
  Company Number: US-VERTEX PHARMACEUTICALS-2019-003384

PATIENT
  Age: 64 Year
  Sex: Female
  Weight: 53 kg

DRUGS (16)
  1. CAYSTON [Concomitant]
     Active Substance: AZTREONAM
  2. KALYDECO [Suspect]
     Active Substance: IVACAFTOR
     Indication: CYSTIC FIBROSIS
     Dosage: 1 DOSAGE FORM, BID
     Route: 048
  3. AMBIEN [Concomitant]
     Active Substance: ZOLPIDEM TARTRATE
  4. GABAPENTIN. [Concomitant]
     Active Substance: GABAPENTIN
  5. ALBUTEROL SULFATE. [Concomitant]
     Active Substance: ALBUTEROL SULFATE
     Route: 055
  6. SEREVENT DISKUS [Concomitant]
     Active Substance: SALMETEROL XINAFOATE
  7. FLOVENT HFA [Concomitant]
     Active Substance: FLUTICASONE PROPIONATE
  8. TOPAMAX [Concomitant]
     Active Substance: TOPIRAMATE
  9. ZYRTEC [Concomitant]
     Active Substance: CETIRIZINE HYDROCHLORIDE
  10. ALBUTEROL                          /00139501/ [Concomitant]
     Active Substance: ALBUTEROL
  11. XELODA [Concomitant]
     Active Substance: CAPECITABINE
  12. TUMS [Concomitant]
     Active Substance: CALCIUM CARBONATE
  13. LOVASTATIN. [Concomitant]
     Active Substance: LOVASTATIN
  14. RANITIDINE. [Concomitant]
     Active Substance: RANITIDINE
     Route: 048
  15. VERZENIO [Concomitant]
     Active Substance: ABEMACICLIB
  16. AZITHROMYCIN ANHYDROUS. [Concomitant]
     Active Substance: AZITHROMYCIN ANHYDROUS

REACTIONS (1)
  - Pancreatitis [Unknown]

NARRATIVE: CASE EVENT DATE: 201904
